FAERS Safety Report 18943953 (Version 2)
Quarter: 2021Q1

REPORT INFORMATION
  Report Type: Spontaneous
  Country: US (occurrence: US)
  Receive Date: 20210226
  Receipt Date: 20210302
  Transmission Date: 20210420
  Serious: No
  Sender: FDA-Public Use
  Company Number: NVSC2021US037315

PATIENT
  Sex: Female

DRUGS (1)
  1. IMIPRAMINE [Suspect]
     Active Substance: IMIPRAMINE
     Indication: PRODUCT USED FOR UNKNOWN INDICATION
     Dosage: 50 MG (150 MG DAILY)
     Route: 065

REACTIONS (4)
  - Pain [Unknown]
  - Visual impairment [Unknown]
  - Headache [Unknown]
  - Migraine [Unknown]
